FAERS Safety Report 5702333-5 (Version None)
Quarter: 2008Q2

REPORT INFORMATION
  Report Type: 
  Country: None (occurrence: None)
  Receive Date: 20080411
  Receipt Date: 20080401
  Transmission Date: 20081010
  Serious: Yes (Other)
  Sender: FDA-Public Use
  Company Number: US-ABBOTT-08P-163-0445011-00

PATIENT
  Age: 27 Year
  Sex: Female

DRUGS (1)
  1. DEPAKOTE [Suspect]
     Indication: EPILEPSY

REACTIONS (3)
  - ABORTION SPONTANEOUS [None]
  - INFERTILITY FEMALE [None]
  - POLYCYSTIC OVARIES [None]
